FAERS Safety Report 20455059 (Version 1)
Quarter: 2022Q1

REPORT INFORMATION
  Report Type: Spontaneous
  Country: AU (occurrence: AU)
  Receive Date: 20220210
  Receipt Date: 20220210
  Transmission Date: 20220423
  Serious: Yes (Other)
  Sender: FDA-Public Use
  Company Number: AU-AMGEN-AUSSP2022020820

PATIENT
  Age: 73 Year
  Sex: Female

DRUGS (3)
  1. ADALIMUMAB [Suspect]
     Active Substance: ADALIMUMAB
     Indication: Product used for unknown indication
     Dosage: 40 MILLIGRAM, Q2WK
     Route: 058
  2. OZURDEX [Suspect]
     Active Substance: DEXAMETHASONE
     Indication: Uveitis
     Dosage: 0.7 MILLIGRAM
     Route: 065
     Dates: start: 20191119
  3. OZURDEX [Suspect]
     Active Substance: DEXAMETHASONE
     Indication: Serpiginous choroiditis

REACTIONS (2)
  - Corneal decompensation [Recovered/Resolved with Sequelae]
  - Device dislocation [Unknown]

NARRATIVE: CASE EVENT DATE: 20191223
